FAERS Safety Report 6575902-0 (Version None)
Quarter: 2010Q1

REPORT INFORMATION
  Report Type: 
  Country: None (occurrence: None)
  Receive Date: 20100209
  Receipt Date: 20100119
  Transmission Date: 20100710
  Serious: No
  Sender: FDA-Public Use
  Company Number: US-JNJFOC-20100110232

PATIENT
  Age: 20 Year
  Sex: Female
  Weight: 54 kg

DRUGS (10)
  1. ETOMIDATE [Suspect]
     Indication: ANAESTHESIA
     Route: 065
  2. FENTANYL-100 [Suspect]
     Indication: DRUG USE FOR UNKNOWN INDICATION
     Route: 065
  3. LIDOCAINE [Suspect]
     Indication: DRUG USE FOR UNKNOWN INDICATION
     Route: 065
  4. SUCCINYLCHOLINE CHLORIDE [Suspect]
     Indication: DRUG USE FOR UNKNOWN INDICATION
     Route: 065
  5. ISOFLURANE [Suspect]
     Indication: ANAESTHESIA
     Route: 065
  6. MORPHINE INFUSION [Suspect]
     Indication: HYPOTONIA
     Route: 065
  7. VECURONIUM BROMIDE [Suspect]
     Indication: HYPOTONIA
     Route: 065
  8. LACTATED RINGER'S [Suspect]
     Indication: VOLUME BLOOD INCREASED
     Route: 065
  9. EPHEDRINE SUL CAP [Suspect]
     Indication: MEAN ARTERIAL PRESSURE
     Route: 065
  10. HEPARIN [Suspect]
     Indication: MEAN ARTERIAL PRESSURE
     Route: 042

REACTIONS (1)
  - DRUG EXPOSURE DURING PREGNANCY [None]
